FAERS Safety Report 7117186-0 (Version None)
Quarter: 2010Q4

REPORT INFORMATION
  Report Type: 
  Country: None (occurrence: None)
  Receive Date: 20101122
  Receipt Date: 20101109
  Transmission Date: 20110411
  Serious: Yes (Death, Hospitalization)
  Sender: FDA-Public Use
  Company Number: CH-MYLANLABS-2010S1020960

PATIENT
  Age: 83 Year
  Sex: Female

DRUGS (18)
  1. AMIODARONE HCL [Suspect]
     Route: 065
  2. AZITHROMYCIN [Interacting]
     Indication: RESPIRATORY TRACT INFECTION
     Route: 048
  3. FOSINOPRIL SODIUM [Concomitant]
     Route: 065
  4. HYDROCHLOROTHIAZIDE [Concomitant]
     Route: 065
  5. FUROSEMIDE [Concomitant]
     Indication: CARDIAC FAILURE
     Route: 065
  6. NEBIVOLOL [Concomitant]
     Route: 065
  7. PHENPROCOUMON [Concomitant]
     Dosage: ONCE DAILY ADMINISTRATION ACCORDING TO INR
     Route: 065
  8. MAGNESIUM [Concomitant]
     Route: 065
  9. POTASSIUM CHLORIDE [Concomitant]
     Indication: HYPOKALAEMIA
     Route: 048
  10. METFORMIN HCL [Concomitant]
     Route: 065
  11. MIXTARD HUMAN 70/30 [Concomitant]
     Route: 065
  12. INSULATARD /00646002/ [Concomitant]
     Route: 065
  13. SALMETEROL [Concomitant]
     Route: 065
  14. FLUTICASONE PROPIONATE [Concomitant]
     Route: 065
  15. TRIMIPRAMINE MALEATE [Concomitant]
     Route: 065
  16. SPIRONOLACTONE [Concomitant]
     Indication: CARDIAC FAILURE
     Route: 065
  17. DIGOXIN [Concomitant]
     Indication: CARDIAC FAILURE
     Route: 065
  18. ELTROXIN [Concomitant]
     Indication: HYPOTHYROIDISM
     Route: 065

REACTIONS (6)
  - CARDIAC FAILURE [None]
  - CIRCULATORY COLLAPSE [None]
  - DRUG INTERACTION [None]
  - HYPOKALAEMIA [None]
  - HYPOTHYROIDISM [None]
  - VENTRICULAR ARRHYTHMIA [None]
